FAERS Safety Report 7059917-4 (Version None)
Quarter: 2010Q4

REPORT INFORMATION
  Report Type: 
  Country: None (occurrence: None)
  Receive Date: 20101025
  Receipt Date: 20101018
  Transmission Date: 20110411
  Serious: Yes (Hospitalization)
  Sender: FDA-Public Use
  Company Number: BE-MILLENNIUM PHARMACEUTICALS, INC.-2010-04309

PATIENT

DRUGS (16)
  1. VELCADE [Suspect]
     Indication: MULTIPLE MYELOMA
     Dosage: UNK
     Route: 042
     Dates: start: 20100702, end: 20100723
  2. MELPHALAN HYDROCHLORIDE [Suspect]
     Indication: MULTIPLE MYELOMA
     Dosage: UNK
     Route: 048
     Dates: start: 20100702, end: 20100723
  3. PREDNISONE [Suspect]
     Indication: MULTIPLE MYELOMA
     Dosage: UNK
     Route: 048
     Dates: start: 20100702, end: 20100723
  4. REVLIMID [Suspect]
     Indication: MULTIPLE MYELOMA
     Dosage: 10 MG, UNK
     Route: 048
     Dates: start: 20100308
  5. REVLIMID [Suspect]
     Dosage: 10 MG, UNK
     Route: 048
     Dates: start: 20100504, end: 20100531
  6. DEXAMETHASONE [Suspect]
     Indication: MULTIPLE MYELOMA
     Dosage: 80 MG, UNK
     Dates: start: 20100308
  7. DEXAMETHASONE [Suspect]
     Dosage: 80 MG, UNK
     Route: 048
     Dates: start: 20100504, end: 20100531
  8. ASPIRIN [Concomitant]
     Indication: THROMBOSIS PROPHYLAXIS
  9. BISOPROLOL [Concomitant]
     Indication: CORONARY ARTERY BYPASS
     Dosage: 10 MG, UNK
     Route: 048
  10. ALDACTAZINE [Concomitant]
     Indication: CORONARY ARTERY BYPASS
     Dosage: 0.5 DF, UNK
     Route: 048
  11. LORAZEPAM [Concomitant]
     Indication: SLEEP DISORDER
     Dosage: 1 MG, UNK
     Route: 048
  12. LACTULOSE [Concomitant]
     Indication: CONSTIPATION
     Dosage: UNK
     Route: 048
  13. SODIUM PICOSULFATE [Concomitant]
     Indication: CONSTIPATION
     Dosage: UNK
     Route: 048
     Dates: start: 20090825, end: 20100723
  14. DOMPERIDON                         /00498202/ [Concomitant]
     Indication: PROPHYLAXIS OF NAUSEA AND VOMITING
     Dosage: UNK
     Route: 048
     Dates: start: 20090825, end: 20100723
  15. IBUPROFEN [Concomitant]
     Indication: MYALGIA
     Dosage: UNK
     Route: 048
     Dates: start: 20091021, end: 20100723
  16. ASAFLOW [Concomitant]
     Indication: THROMBOSIS PROPHYLAXIS
     Dosage: 80 MG, UNK
     Route: 048
     Dates: start: 20100309

REACTIONS (5)
  - DECREASED APPETITE [None]
  - DIARRHOEA [None]
  - DYSPNOEA EXERTIONAL [None]
  - GENERAL PHYSICAL HEALTH DETERIORATION [None]
  - PYREXIA [None]
